FAERS Safety Report 9988768 (Version 1)
Quarter: 2014Q1

REPORT INFORMATION
  Report Type: Spontaneous
  Country: SE (occurrence: SE)
  Receive Date: 20140310
  Receipt Date: 20140310
  Transmission Date: 20141002
  Serious: Yes (Other)
  Sender: FDA-Public Use
  Company Number: SE-ACCORD-022223

PATIENT
  Sex: 0

DRUGS (1)
  1. FINASTERIDE [Suspect]
     Indication: PRODUCT USED FOR UNKNOWN INDICATION
     Dosage: BLUE TABLETS,?TAKING FOR ABOUT ONE YEAR

REACTIONS (3)
  - Alopecia [Unknown]
  - Libido decreased [Unknown]
  - Sexual dysfunction [Unknown]
